FAERS Safety Report 6134463-0 (Version None)
Quarter: 2009Q1

REPORT INFORMATION
  Report Type: 
  Country: None (occurrence: None)
  Receive Date: 20090327
  Receipt Date: 20090318
  Transmission Date: 20090719
  Serious: Yes (Hospitalization, Other)
  Sender: FDA-Public Use
  Company Number: US-AVENTIS-200912352US

PATIENT
  Age: 55 Year
  Sex: Female

DRUGS (4)
  1. LOVENOX [Suspect]
     Indication: THROMBOSIS PROPHYLAXIS
     Dosage: DOSE: UNK
     Route: 051
  2. COUMADIN [Suspect]
     Dosage: DOSE: UNK
  3. COUMADIN [Suspect]
  4. HEPARIN [Suspect]
     Dosage: DOSE: UNK

REACTIONS (7)
  - DRUG EFFECT DECREASED [None]
  - INJECTION SITE MASS [None]
  - INTERNATIONAL NORMALISED RATIO ABNORMAL [None]
  - INTERNATIONAL NORMALISED RATIO DECREASED [None]
  - INTERNATIONAL NORMALISED RATIO FLUCTUATION [None]
  - MALABSORPTION FROM INJECTION SITE [None]
  - PULMONARY EMBOLISM [None]
